FAERS Safety Report 6425885-9 (Version None)
Quarter: 2009Q4

REPORT INFORMATION
  Report Type: 
  Country: None (occurrence: None)
  Receive Date: 20091029
  Receipt Date: 20091006
  Transmission Date: 20100525
  Serious: Yes (Other)
  Sender: FDA-Public Use
  Company Number: AVE_01048_2009

PATIENT
  Sex: Female

DRUGS (2)
  1. NICOTINE [Suspect]
     Indication: NARCOLEPSY
     Dosage: 21 MG QD TRANSDERMAL
     Route: 062
     Dates: start: 20091001, end: 20091006
  2. NICOTINE [Suspect]
     Indication: SMOKING CESSATION THERAPY
     Dosage: 21 MG QD TRANSDERMAL
     Route: 062
     Dates: start: 20091001, end: 20091006

REACTIONS (5)
  - CHEST DISCOMFORT [None]
  - DRUG INTERACTION [None]
  - HEADACHE [None]
  - OROPHARYNGEAL PAIN [None]
  - TREATMENT NONCOMPLIANCE [None]
